FAERS Safety Report 4307227-8 (Version None)
Quarter: 2004Q1

REPORT INFORMATION
  Report Type: 
  Country: None (occurrence: None)
  Receive Date: 20040226
  Receipt Date: 20040213
  Transmission Date: 20041129
  Serious: Yes (Hospitalization)
  Sender: FDA-Public Use
  Company Number: CHPA2004US01165

PATIENT
  Age: 24 Year
  Sex: Male
  Weight: 63.5 kg

DRUGS (2)
  1. EX-LAX MAX STR LAX PILLS SENNA (NCH)(SENNA GLYCOSIDES (CA SALTS OF PUR [Suspect]
     Indication: GASTROINTESTINAL PAIN
     Dosage: 2 PILLS, ONCE/SINGLE, ORAL
     Route: 048
     Dates: start: 20040213, end: 20040213
  2. MAGNESIUM CITRATE [Concomitant]

REACTIONS (6)
  - ABDOMINAL PAIN [None]
  - CONDITION AGGRAVATED [None]
  - DIVERTICULITIS [None]
  - GASTROINTESTINAL OEDEMA [None]
  - INTESTINAL OBSTRUCTION [None]
  - VOMITING [None]
